FAERS Safety Report 5775178-8 (Version None)
Quarter: 2008Q2

REPORT INFORMATION
  Report Type: 
  Country: None (occurrence: None)
  Receive Date: 20080617
  Receipt Date: 20080616
  Transmission Date: 20081010
  Serious: Yes (Other)
  Sender: FDA-Public Use
  Company Number: A0729849A

PATIENT
  Age: 65 Year
  Sex: Female
  Weight: 75 kg

DRUGS (2)
  1. ALLI [Suspect]
  2. XENICAL [Suspect]

REACTIONS (7)
  - AORTIC CALCIFICATION [None]
  - ARTERIOSCLEROSIS [None]
  - ASTHENIA [None]
  - BLOOD CHOLESTEROL INCREASED [None]
  - FATIGUE [None]
  - HEPATIC STEATOSIS [None]
  - X-RAY ABNORMAL [None]
